FAERS Safety Report 16698981 (Version 1)
Quarter: 2019Q3

REPORT INFORMATION
  Report Type: Spontaneous
  Country: US (occurrence: US)
  Receive Date: 20190813
  Receipt Date: 20190813
  Transmission Date: 20191004
  Serious: No
  Sender: FDA-Public Use
  Company Number: US-PERRIGO-18US013257

PATIENT
  Age: 72 Year
  Sex: Female
  Weight: 63.49 kg

DRUGS (4)
  1. LORATADINE. [Suspect]
     Active Substance: LORATADINE
     Indication: HYPERSENSITIVITY
     Dosage: 10 MG, SINGLE
     Route: 048
     Dates: start: 20181115, end: 20181115
  2. LORATADINE. [Suspect]
     Active Substance: LORATADINE
     Indication: RHINORRHOEA
  3. LORATADINE. [Suspect]
     Active Substance: LORATADINE
     Indication: NASAL PRURITUS
  4. LORATADINE. [Suspect]
     Active Substance: LORATADINE
     Indication: THROAT IRRITATION

REACTIONS (2)
  - Drug ineffective [Unknown]
  - Expired product administered [Recovered/Resolved]

NARRATIVE: CASE EVENT DATE: 20181115
